FAERS Safety Report 7201626-2 (Version None)
Quarter: 2010Q4

REPORT INFORMATION
  Report Type: 
  Country: None (occurrence: None)
  Receive Date: 20101214
  Receipt Date: 20101202
  Transmission Date: 20110411
  Serious: Yes (Hospitalization)
  Sender: FDA-Public Use
  Company Number: ALA_01160_2010

PATIENT
  Age: 90 Year
  Sex: Female

DRUGS (1)
  1. REGLAN [Suspect]
     Indication: PRODUCT USED FOR UNKNOWN INDICATION
     Dosage: (DF ORAL)
     Route: 048
     Dates: end: 20101101

REACTIONS (6)
  - CEREBROVASCULAR ACCIDENT [None]
  - DECREASED APPETITE [None]
  - HYPOVENTILATION [None]
  - LACRIMATION INCREASED [None]
  - TARDIVE DYSKINESIA [None]
  - TREMOR [None]
